FAERS Safety Report 8912518 (Version 1)
Quarter: 2012Q4

REPORT INFORMATION
  Report Type: 
  Country: US (occurrence: US)
  Receive Date: 20121116
  Receipt Date: 20121116
  Transmission Date: 20130627
  Serious: Yes (Other)
  Sender: FDA-Public Use
  Company Number: US-ROCHE-1133960

PATIENT
  Sex: Female

DRUGS (7)
  1. RITUXAN [Suspect]
     Indication: PRODUCT USED FOR UNKNOWN INDICATION
     Dosage: unknown
     Route: 065
  2. RITUXAN [Suspect]
     Dosage: on an every other month schedule
     Route: 065
     Dates: start: 20010411
  3. CYTOXAN [Concomitant]
  4. ONCOVIN [Concomitant]
  5. PREDNISONE [Concomitant]
  6. BIAXIN (UNITED STATES) [Concomitant]
  7. LEVAQUIN [Concomitant]

REACTIONS (4)
  - Dyspnoea [Unknown]
  - Urine output decreased [Unknown]
  - Otitis media [Unknown]
  - Pyrexia [Unknown]
